FAERS Safety Report 9770124 (Version 2)
Quarter: 2013Q4

REPORT INFORMATION
  Report Type: Spontaneous
  Country: US (occurrence: US)
  Receive Date: 20131218
  Receipt Date: 20131218
  Transmission Date: 20140711
  Serious: No
  Sender: FDA-Public Use
  Company Number: US-VERTEX PHARMACEUTICALS INC-AE-2011-001003

PATIENT
  Age: 47 Year
  Sex: Male
  Weight: 79.91 kg

DRUGS (8)
  1. INCIVEK [Suspect]
     Indication: HEPATITIS C
     Dates: start: 20110811
  2. RIBASPHERE [Concomitant]
     Indication: HEPATITIS C
     Dates: start: 20110619
  3. PEGASYS [Concomitant]
     Indication: HEPATITIS C
     Route: 058
     Dates: start: 20110619
  4. SINGULAIR [Concomitant]
  5. ALBUTEROL INHALER [Concomitant]
  6. VICODIN [Concomitant]
  7. ALEVE [Concomitant]
  8. DEXILANT [Concomitant]

REACTIONS (1)
  - Nausea [Recovered/Resolved]
